FAERS Safety Report 6745762-3 (Version None)
Quarter: 2010Q2

REPORT INFORMATION
  Report Type: 
  Country: None (occurrence: None)
  Receive Date: 20100528
  Receipt Date: 20100518
  Transmission Date: 20101027
  Serious: Yes (Other)
  Sender: FDA-Public Use
  Company Number: PHHY2009VE49255

PATIENT
  Sex: Female

DRUGS (12)
  1. ACLASTA [Suspect]
     Indication: OSTEOPOROSIS
     Dosage: 5 MG PER YEAR
     Route: 042
     Dates: start: 20070701
  2. ACLASTA [Suspect]
     Dosage: 5 MG/YEAR
     Route: 042
     Dates: start: 20090310
  3. CALCIUM CARBONATE [Concomitant]
     Route: 048
  4. PLAVIX [Concomitant]
     Dosage: 1 DF, QD
     Route: 048
     Dates: start: 20060101
  5. FOSAMAX [Concomitant]
     Route: 048
  6. NOLVADEX [Concomitant]
     Dosage: ONCE A DAY
  7. CLIMASOY [Concomitant]
     Dosage: UNK
     Dates: start: 20060101
  8. ANTIALLERGIC AGENTS [Concomitant]
  9. GLUCOSAMINE [Concomitant]
  10. MAGNESIUM [Concomitant]
  11. LETISAN [Concomitant]
  12. VITAMINS [Concomitant]
     Dosage: UNK

REACTIONS (12)
  - ARTHROPATHY [None]
  - BACK PAIN [None]
  - BREAST CANCER [None]
  - CHILLS [None]
  - JOINT SPRAIN [None]
  - LIMB DISCOMFORT [None]
  - MALAISE [None]
  - MUSCULOSKELETAL CHEST PAIN [None]
  - NERVOUS SYSTEM DISORDER [None]
  - PYREXIA [None]
  - SOMNOLENCE [None]
  - SURGERY [None]
